FAERS Safety Report 11926928 (Version 2)
Quarter: 2016Q1

REPORT INFORMATION
  Report Type: Spontaneous
  Country: TH (occurrence: TH)
  Receive Date: 20160119
  Receipt Date: 20160127
  Transmission Date: 20160526
  Serious: Yes (Hospitalization)
  Sender: FDA-Public Use
  Company Number: TH-PFIZER INC-2016012764

PATIENT
  Age: 75 Year
  Sex: Male

DRUGS (3)
  1. DILANTIN [Suspect]
     Active Substance: PHENYTOIN
     Indication: SEIZURE
     Dosage: UNK
     Dates: start: 20151205
  2. DILANTIN [Suspect]
     Active Substance: PHENYTOIN
     Dosage: UNK
     Route: 048
  3. DILANTIN [Suspect]
     Active Substance: PHENYTOIN
     Route: 048

REACTIONS (4)
  - Rash [Recovering/Resolving]
  - Glossodynia [Recovering/Resolving]
  - Mouth ulceration [Recovering/Resolving]
  - Condition aggravated [Recovering/Resolving]

NARRATIVE: CASE EVENT DATE: 20160106
